FAERS Safety Report 24218074 (Version 1)
Quarter: 2024Q3

REPORT INFORMATION
  Report Type: Spontaneous
  Country: US (occurrence: US)
  Receive Date: 20240816
  Receipt Date: 20240816
  Transmission Date: 20241017
  Serious: Yes (Other)
  Sender: COSMETIC MANUFACTURER
  Company Number: US-Hello Bello Consumer Wellness-2160543

PATIENT
  Age: 38 Year
  Sex: Female

DRUGS (1)
  1. COSMETICS [Suspect]
     Active Substance: COSMETICS
     Route: 061
     Dates: start: 20240326, end: 20240326

REACTIONS (1)
  - Hypersensitivity [Recovered/Resolved]
